FAERS Safety Report 6341367-7 (Version None)
Quarter: 2009Q3

REPORT INFORMATION
  Report Type: 
  Country: None (occurrence: None)
  Receive Date: 20090904
  Receipt Date: 20090828
  Transmission Date: 20100115
  Serious: Yes (Other)
  Sender: FDA-Public Use
  Company Number: AU-JNJCH-2009023412

PATIENT
  Age: 36 Year
  Sex: Male

DRUGS (1)
  1. ROGAINE [Suspect]
     Indication: ALOPECIA
     Dosage: TEXT:UNSPECIFIED TWICE DAILY
     Route: 061
     Dates: start: 20090528, end: 20090618

REACTIONS (2)
  - ERECTILE DYSFUNCTION [None]
  - PRURITUS GENERALISED [None]
